FAERS Safety Report 8301175 (Version 2)
Quarter: 2013Q1

REPORT INFORMATION
  Report Type: Spontaneous
  Country: US (occurrence: US)
  Receive Date: 20111219
  Receipt Date: 20130311
  Transmission Date: 20140127
  Serious: No
  Sender: FDA-Public Use
  Company Number: US-ASTRAZENECA-2011SE24356

PATIENT
  Age: 79 Year
  Sex: Female

DRUGS (16)
  1. CRESTOR [Suspect]
     Route: 048
  2. VICODIN [Suspect]
     Indication: HERPES ZOSTER
     Route: 065
  3. GABAPENTIN [Suspect]
     Indication: HERPES ZOSTER
     Route: 065
  4. LIDOCAINE [Suspect]
     Indication: HERPES ZOSTER
     Route: 061
  5. OXYCODONE [Suspect]
     Indication: HERPES ZOSTER
     Route: 065
  6. OXYMORPHONE [Suspect]
     Indication: HERPES ZOSTER
     Route: 065
  7. TRAMADOL [Suspect]
     Indication: HERPES ZOSTER
     Route: 065
  8. RED YEAST RICE [Concomitant]
  9. CHOLESTYRAMINE [Concomitant]
  10. LIPITOR [Concomitant]
  11. SIMVASTATIN [Concomitant]
  12. PRAVACHOL [Concomitant]
  13. LOVASTATIN [Concomitant]
  14. COLESTIPOL [Concomitant]
  15. AGGRENOX [Concomitant]
  16. LESCOL XL 80 [Concomitant]

REACTIONS (10)
  - Chest pain [Unknown]
  - Herpes zoster [Unknown]
  - Malaise [Unknown]
  - Blood cholesterol increased [Unknown]
  - Dizziness [Unknown]
  - Muscular weakness [Unknown]
  - Muscular weakness [Unknown]
  - Muscle spasms [Unknown]
  - Myalgia [Unknown]
  - Drug ineffective [Unknown]
